FAERS Safety Report 14849453 (Version 3)
Quarter: 2018Q2

REPORT INFORMATION
  Report Type: Report from Study
  Country: IT (occurrence: IT)
  Receive Date: 20180504
  Receipt Date: 20180628
  Transmission Date: 20180711
  Serious: Yes (Other)
  Sender: FDA-Public Use
  Company Number: IT-ROCHE-2116962

PATIENT
  Age: 43 Year
  Sex: Female

DRUGS (2)
  1. XANAX [Suspect]
     Active Substance: ALPRAZOLAM
     Indication: INTENTIONAL SELF-INJURY
     Dosage: UNIT DOSE: 20 [DRP]?0.75 MG/ML
     Route: 048
     Dates: start: 20170514, end: 20170514
  2. CLONAZEPAM. [Suspect]
     Active Substance: CLONAZEPAM
     Indication: INTENTIONAL SELF-INJURY
     Dosage: UNIT DOSE: 20 [DRP]?2.5 MG/ML
     Route: 048
     Dates: start: 20170514, end: 20170514

REACTIONS (2)
  - Medication error [Unknown]
  - Sopor [Recovering/Resolving]

NARRATIVE: CASE EVENT DATE: 20170514
